FAERS Safety Report 10011533 (Version 2)
Quarter: 2014Q1

REPORT INFORMATION
  Report Type: Report from Study
  Country: KR (occurrence: KR)
  Receive Date: 20140314
  Receipt Date: 20140314
  Transmission Date: 20141002
  Serious: Yes (Death, Hospitalization)
  Sender: FDA-Public Use
  Company Number: KR-ASTELLAS-2014JP000851

PATIENT
  Age: 64 Year
  Sex: Male

DRUGS (10)
  1. TACROLIMUS MR4 CAPSULES [Suspect]
     Indication: LIVER TRANSPLANT
     Dosage: 4 MG, UNKNOWN/D
     Route: 048
     Dates: start: 20131219, end: 20140216
  2. MUCOSTEN [Concomitant]
     Dosage: 600 MG, UNKNOWN/D
     Route: 042
     Dates: start: 20131128, end: 20140216
  3. FLAVIN ADENINE DINUCLEOTIDE [Concomitant]
     Dosage: 4 ML, UNKNOWN/D
     Route: 042
     Dates: start: 20131121, end: 20140215
  4. ONEFLU [Concomitant]
     Dosage: 200 MG, UNKNOWN/D
     Route: 042
     Dates: start: 20131203, end: 20140117
  5. NYSTATIN [Concomitant]
     Dosage: 8 ML, UNKNOWN/D
     Route: 048
     Dates: start: 20131117, end: 20140216
  6. PANTOLOC                           /01263204/ [Concomitant]
     Dosage: 40 MG, UNKNOWN/D
     Route: 042
     Dates: start: 20131121, end: 20140216
  7. TEPRA [Concomitant]
     Dosage: 40 MG, UNKNOWN/D
     Route: 042
     Dates: start: 20131212, end: 20140122
  8. MOTILITONE [Concomitant]
     Dosage: 90 MG, UNKNOWN/D
     Route: 048
     Dates: start: 20131114, end: 20140112
  9. ALMAGEL-F [Concomitant]
     Dosage: 60 ML, UNKNOWN/D
     Route: 048
     Dates: start: 20131128, end: 20140216
  10. SEPTRIN [Concomitant]
     Dosage: 2 DF, UNKNOWN/D
     Route: 048
     Dates: start: 20131123, end: 20131227

REACTIONS (3)
  - Multi-organ failure [Fatal]
  - Sepsis [Fatal]
  - Acinetobacter test positive [Fatal]
